FAERS Safety Report 23352124 (Version 1)
Quarter: 2023Q4

REPORT INFORMATION
  Report Type: Report from Study
  Country: US (occurrence: US)
  Receive Date: 20231229
  Receipt Date: 20231229
  Transmission Date: 20240110
  Serious: Yes (Other)
  Sender: FDA-Public Use
  Company Number: US-TAKEDA-2023TUS123444

PATIENT
  Sex: Female

DRUGS (2)
  1. IXAZOMIB [Suspect]
     Active Substance: IXAZOMIB
     Indication: Product used for unknown indication
     Dosage: 3 MILLIGRAM
     Route: 048
  2. REVLIMID [Suspect]
     Active Substance: LENALIDOMIDE
     Indication: Product used for unknown indication
     Dosage: UNK
     Route: 065

REACTIONS (2)
  - Cardiac failure congestive [Unknown]
  - Diarrhoea [Unknown]
